FAERS Safety Report 7387551-5 (Version None)
Quarter: 2011Q1

REPORT INFORMATION
  Report Type: 
  Country: None (occurrence: None)
  Receive Date: 20110331
  Receipt Date: 20110329
  Transmission Date: 20110831
  Serious: Yes (Death, Other)
  Sender: FDA-Public Use
  Company Number: US-AMGEN-USASP2010001196

PATIENT
  Sex: Male
  Weight: 55 kg

DRUGS (1)
  1. NPLATE [Suspect]
     Indication: THROMBOCYTOPENIA
     Dosage: 55 A?G, UNK
     Dates: start: 20100903, end: 20100903

REACTIONS (2)
  - MULTIMORBIDITY [None]
  - COLON CANCER [None]
